FAERS Safety Report 5088635-7 (Version None)
Quarter: 2006Q3

REPORT INFORMATION
  Report Type: 
  Country: None (occurrence: None)
  Receive Date: 20060825
  Receipt Date: 20060816
  Transmission Date: 20061208
  Serious: Yes (Hospitalization, Other)
  Sender: FDA-Public Use
  Company Number: US-BAYER-200613482BCC

PATIENT
  Age: 59 Year
  Sex: Female
  Weight: 63 kg

DRUGS (11)
  1. ASPIRIN [Suspect]
     Indication: PAIN
     Route: 048
     Dates: start: 20021031, end: 20021107
  2. PEG-INTRON [Suspect]
     Indication: HEPATITIS C
     Dosage: AS USED: 120 ?G
     Route: 058
     Dates: start: 20021031, end: 20021105
  3. PEG-INTRON [Suspect]
     Route: 058
     Dates: start: 20060629, end: 20060724
  4. REBETOL [Suspect]
     Indication: HEPATITIS C
     Route: 048
     Dates: start: 20060629, end: 20060724
  5. REBETOL [Suspect]
     Route: 048
     Dates: start: 20021031, end: 20021105
  6. ACTONEL [Suspect]
     Indication: HYPERTENSION
     Route: 048
     Dates: end: 20060101
  7. CATAPRES [Suspect]
     Indication: HYPERTENSION
     Route: 048
     Dates: end: 20060101
  8. NORVASC [Suspect]
     Indication: HYPERTENSION
     Route: 048
     Dates: end: 20060101
  9. CLONIDINE [Suspect]
     Indication: HYPERTENSION
     Route: 048
     Dates: start: 20010101, end: 20060101
  10. MULTIVITAMIN [Concomitant]
  11. CALCIUM GLUCONATE [Concomitant]

REACTIONS (23)
  - ANOREXIA [None]
  - ASTHENIA [None]
  - BLOOD URINE PRESENT [None]
  - CHILLS [None]
  - DEHYDRATION [None]
  - DIZZINESS [None]
  - DYSSTASIA [None]
  - DYSURIA [None]
  - EATING DISORDER [None]
  - EPISTAXIS [None]
  - FAECES DISCOLOURED [None]
  - FATIGUE [None]
  - GAIT DISTURBANCE [None]
  - GASTRIC HAEMORRHAGE [None]
  - GASTRITIS EROSIVE [None]
  - GASTROINTESTINAL HAEMORRHAGE [None]
  - HEADACHE [None]
  - HYPOTENSION [None]
  - MUSCULOSKELETAL CHEST PAIN [None]
  - NAUSEA [None]
  - NEPHROLITHIASIS [None]
  - URINARY TRACT INFECTION [None]
  - WEIGHT DECREASED [None]
